FAERS Safety Report 5481038-2 (Version None)
Quarter: 2007Q4

REPORT INFORMATION
  Report Type: 
  Country: None (occurrence: None)
  Receive Date: 20071009
  Receipt Date: 20070927
  Transmission Date: 20080405
  Serious: Yes (Other)
  Sender: FDA-Public Use
  Company Number: NL-PFIZER INC-2007081190

PATIENT
  Sex: Female

DRUGS (1)
  1. PROVERA [Suspect]
     Indication: UTERINE CANCER
     Route: 048

REACTIONS (1)
  - MENINGIOMA [None]
